FAERS Safety Report 19351703 (Version 2)
Quarter: 2021Q2

REPORT INFORMATION
  Report Type: Spontaneous
  Country: SK (occurrence: SK)
  Receive Date: 20210531
  Receipt Date: 20210610
  Transmission Date: 20210717
  Serious: Yes (Other)
  Sender: FDA-Public Use
  Company Number: SK-EMD SERONO-9239680

PATIENT
  Age: 76 Year
  Sex: Female

DRUGS (2)
  1. REBIF [Suspect]
     Active Substance: INTERFERON BETA-1A
     Indication: MULTIPLE SCLEROSIS
     Dates: start: 2011
  2. PREDNISONE. [Concomitant]
     Active Substance: PREDNISONE
     Indication: MULTIPLE SCLEROSIS RELAPSE
     Dosage: FREQUENCY 1X1 (UNSPECIFIED)

REACTIONS (2)
  - Urinary incontinence [Recovering/Resolving]
  - Cerebral atrophy [Recovering/Resolving]

NARRATIVE: CASE EVENT DATE: 2016
